FAERS Safety Report 8599291-5 (Version None)
Quarter: 2012Q3

REPORT INFORMATION
  Report Type: 
  Country: None (occurrence: None)
  Receive Date: 20120816
  Receipt Date: 20120801
  Transmission Date: 20120928
  Serious: Yes (Hospitalization)
  Sender: FDA-Public Use
  Company Number: JP-FRI-1000037486

PATIENT
  Sex: Male

DRUGS (5)
  1. ARICEPT [Suspect]
     Indication: DEMENTIA ALZHEIMER'S TYPE
     Dosage: 10 MG
     Route: 048
     Dates: start: 20090529, end: 20120718
  2. TICLOPIDINE HCL [Concomitant]
     Indication: ARTERIOSCLEROSIS
     Dosage: 300 MG
     Route: 048
  3. MEMANTINE HCL [Suspect]
     Indication: DEMENTIA ALZHEIMER'S TYPE
     Dosage: 20 MG
     Route: 048
     Dates: end: 20120718
  4. JANUVIA [Concomitant]
     Indication: DIABETES MELLITUS
     Dosage: 50 MG
     Route: 048
  5. LOSARTAN POTASSIUM [Concomitant]
     Indication: HYPERTENSION
     Dosage: 50 MG
     Dates: end: 20120718

REACTIONS (1)
  - TIC [None]
